FAERS Safety Report 5460312-X (Version None)
Quarter: 2007Q3

REPORT INFORMATION
  Report Type: 
  Country: None (occurrence: None)
  Receive Date: 20070919
  Receipt Date: 20070611
  Transmission Date: 20080115
  Serious: Yes (Other)
  Sender: FDA-Public Use
  Company Number: US-ASTRAZENECA-2007UW14076

PATIENT
  Age: 35 Year
  Sex: Male
  Weight: 88.6 kg

DRUGS (3)
  1. SEROQUEL [Suspect]
     Indication: BIPOLAR DISORDER
     Route: 048
     Dates: start: 20060601
  2. TRILEPTAL [Concomitant]
  3. PRILOSEC [Concomitant]
     Route: 048

REACTIONS (1)
  - PRIAPISM [None]
